FAERS Safety Report 21503331 (Version 3)
Quarter: 2022Q4

REPORT INFORMATION
  Report Type: Spontaneous
  Country: US (occurrence: US)
  Receive Date: 20221025
  Receipt Date: 20221031
  Transmission Date: 20230113
  Serious: No
  Sender: FDA-Public Use
  Company Number: US-PFIZER INC-PV202200088951

PATIENT
  Age: 63 Year
  Sex: Female
  Weight: 57.15 kg

DRUGS (3)
  1. PAXLOVID [Suspect]
     Active Substance: NIRMATRELVIR\RITONAVIR
     Indication: COVID-19 treatment
     Dosage: [PF-07321332 100 MG]/[RITONAVIR 100 MG] 2X/DAY
     Route: 048
     Dates: start: 20221021, end: 20221025
  2. PRILOSEC [Concomitant]
     Active Substance: OMEPRAZOLE MAGNESIUM
     Indication: Gastrooesophageal reflux disease
     Dosage: 40 MG CAPSULE ONCE A DAY IN THE MORNING BEFORE EATING
     Route: 048
     Dates: start: 202208, end: 20220817
  3. PEPPERMINT OIL [Concomitant]
     Active Substance: PEPPERMINT OIL
     Indication: Functional gastrointestinal disorder
     Dosage: TAKE 30 TO 90 MINUTES BEFORE A MEAL
     Dates: start: 20221017

REACTIONS (2)
  - Therapeutic product effect incomplete [Unknown]
  - Muscle spasms [Recovered/Resolved]

NARRATIVE: CASE EVENT DATE: 20221021
